FAERS Safety Report 7475675-3 (Version None)
Quarter: 2011Q2

REPORT INFORMATION
  Report Type: 
  Country: None (occurrence: None)
  Receive Date: 20110512
  Receipt Date: 20110502
  Transmission Date: 20111010
  Serious: Yes (Other)
  Sender: FDA-Public Use
  Company Number: US-ROCHE-766891

PATIENT
  Sex: Female
  Weight: 41.7 kg

DRUGS (6)
  1. ACCUTANE [Suspect]
     Dosage: FOR TWO MONTHS.
     Route: 065
     Dates: start: 19930127
  2. ACCUTANE [Suspect]
     Dosage: FOR 40 DAYS.
     Route: 065
     Dates: start: 19950303, end: 19950401
  3. ACCUTANE [Suspect]
     Indication: ACNE
     Dosage: FOR APPROX. FOUR AND A HALF MONTHS.
     Route: 065
     Dates: start: 19920323, end: 19920701
  4. ACCUTANE [Suspect]
     Route: 065
     Dates: start: 19950901, end: 19951201
  5. ACCUTANE [Suspect]
     Dosage: FOR 6 WEEKS.
     Route: 065
     Dates: start: 20000301, end: 20000401
  6. ACCUTANE [Suspect]
     Dosage: FOR 14 WEEKS.
     Route: 065
     Dates: start: 19940919

REACTIONS (7)
  - CROHN'S DISEASE [None]
  - DRY SKIN [None]
  - ANAL FISTULA [None]
  - ACNE [None]
  - INFLAMMATORY BOWEL DISEASE [None]
  - IRRITABLE BOWEL SYNDROME [None]
  - INTESTINAL OBSTRUCTION [None]
